FAERS Safety Report 6410596-6 (Version None)
Quarter: 2009Q4

REPORT INFORMATION
  Report Type: 
  Country: None (occurrence: None)
  Receive Date: 20091022
  Receipt Date: 20091015
  Transmission Date: 20100525
  Serious: Yes (Hospitalization)
  Sender: FDA-Public Use
  Company Number: US-BIOGENIDEC-2009BI015266

PATIENT
  Age: 49 Year
  Sex: Female

DRUGS (1)
  1. AVONEX [Suspect]
     Indication: MULTIPLE SCLEROSIS
     Route: 030
     Dates: start: 20090513, end: 20090513

REACTIONS (9)
  - DECREASED APPETITE [None]
  - DEHYDRATION [None]
  - DIARRHOEA [None]
  - DISORIENTATION [None]
  - HYPERHIDROSIS [None]
  - HYPERSENSITIVITY [None]
  - NAUSEA [None]
  - PYREXIA [None]
  - VOMITING [None]
